FAERS Safety Report 13571050 (Version 1)
Quarter: 2017Q2

REPORT INFORMATION
  Report Type: Spontaneous
  Country: US (occurrence: US)
  Receive Date: 20170523
  Receipt Date: 20170523
  Transmission Date: 20170830
  Serious: No
  Sender: FDA-Public Use
  Company Number: US-CELGENEUS-USA-20170501374

PATIENT
  Age: 70 Year
  Sex: Male

DRUGS (3)
  1. OTEZLA [Suspect]
     Active Substance: APREMILAST
     Indication: PSORIATIC ARTHROPATHY
     Dosage: 10 MILLIGRAM
     Route: 048
     Dates: start: 20170427
  2. OTEZLA [Suspect]
     Active Substance: APREMILAST
     Indication: PSORIATIC ARTHROPATHY
     Dosage: 20 MILLIGRAM
     Route: 048
  3. OTEZLA [Suspect]
     Active Substance: APREMILAST
     Dosage: 10 MG+ 20 MG
     Route: 048

REACTIONS (6)
  - Nausea [Unknown]
  - Headache [Unknown]
  - Abdominal pain upper [Unknown]
  - Unevaluable event [Unknown]
  - Insomnia [Unknown]
  - Therapy non-responder [Unknown]

NARRATIVE: CASE EVENT DATE: 20170427
